FAERS Safety Report 6479173-5 (Version None)
Quarter: 2009Q4

REPORT INFORMATION
  Report Type: 
  Country: None (occurrence: None)
  Receive Date: 20091207
  Receipt Date: 20090217
  Transmission Date: 20100525
  Serious: No
  Sender: FDA-Public Use
  Company Number: US-AMGEN-KDL334190

PATIENT
  Sex: Female
  Weight: 45.4 kg

DRUGS (2)
  1. ENBREL [Suspect]
     Indication: RHEUMATOID ARTHRITIS
     Dates: start: 20090217
  2. FORTEO [Concomitant]

REACTIONS (2)
  - INJECTION SITE PAIN [None]
  - MUSCLE INCISION [None]
